FAERS Safety Report 5422830-X (Version None)
Quarter: 2007Q3

REPORT INFORMATION
  Report Type: 
  Country: None (occurrence: None)
  Receive Date: 20070730
  Receipt Date: 20070611
  Transmission Date: 20080115
  Serious: Yes (Other)
  Sender: FDA-Public Use
  Company Number: 200711535BWH

PATIENT
  Age: 35 Year
  Sex: Female
  Weight: 88.4514 kg

DRUGS (3)
  1. AVELOX [Suspect]
     Indication: URINARY TRACT INFECTION
     Dosage: 400 MG, ONCE, ORAL
     Route: 048
     Dates: start: 20070220
  2. TORADOL [Concomitant]
  3. UROGESIC (PHENAZOPYRIDINE HYDROCHLORIDE) [Concomitant]

REACTIONS (1)
  - HYPERSENSITIVITY [None]
